FAERS Safety Report 10785514 (Version 1)
Quarter: 2015Q1

REPORT INFORMATION
  Report Type: Spontaneous
  Country: US (occurrence: None)
  Receive Date: 20150210
  Receipt Date: 20150210
  Transmission Date: 20150721
  Serious: Yes (Death, Life-Threatening, Hospitalization)
  Sender: FDA-Public Use
  Company Number: None

PATIENT
  Age: 2 Year
  Sex: Female
  Weight: 11.5 kg

DRUGS (3)
  1. EXJADE [Suspect]
     Active Substance: DEFERASIROX
     Route: 048
     Dates: start: 201302
  2. EXJADE [Suspect]
     Active Substance: DEFERASIROX
     Indication: THALASSAEMIA BETA
     Route: 048
     Dates: start: 201302
  3. EXJADE [Suspect]
     Active Substance: DEFERASIROX
     Indication: IRON OVERLOAD
     Route: 048
     Dates: start: 201302

REACTIONS (12)
  - Ammonia increased [None]
  - Respiratory distress [None]
  - Transaminases increased [None]
  - Multi-organ failure [None]
  - Upper respiratory tract infection [None]
  - Acidosis [None]
  - Liver disorder [None]
  - Lethargy [None]
  - Pyrexia [None]
  - Unevaluable event [None]
  - Hernia [None]
  - Fatigue [None]

NARRATIVE: CASE EVENT DATE: 20150106
